FAERS Safety Report 18596324 (Version 1)
Quarter: 2020Q4

REPORT INFORMATION
  Report Type: Report from Study
  Country: DE (occurrence: DE)
  Receive Date: 20201209
  Receipt Date: 20201209
  Transmission Date: 20210114
  Serious: Yes (Hospitalization)
  Sender: FDA-Public Use
  Company Number: DE-JNJFOC-20181209443

PATIENT
  Age: 5 Decade
  Sex: Female

DRUGS (5)
  1. ACEMETACIN [Concomitant]
     Active Substance: ACEMETACIN
     Dosage: 7 DAYS WEEKLY
     Route: 065
     Dates: start: 20181105, end: 20181108
  2. METHOTREXATE. [Concomitant]
     Active Substance: METHOTREXATE
     Dosage: PERORAL
     Route: 065
     Dates: start: 20120101, end: 20181115
  3. SIMPONI [Suspect]
     Active Substance: GOLIMUMAB
     Indication: AXIAL SPONDYLOARTHRITIS
     Route: 058
     Dates: start: 20180226
  4. CELECOXIB. [Concomitant]
     Active Substance: CELECOXIB
     Dosage: 2 DAYS WEEKLY
     Route: 065
     Dates: start: 20170918, end: 20181105
  5. METHOTREXATE. [Concomitant]
     Active Substance: METHOTREXATE
     Dosage: SUBCUTANEOUS
     Route: 065

REACTIONS (4)
  - Oral herpes [Unknown]
  - Nasopharyngitis [Unknown]
  - Tendon rupture [Unknown]
  - Axial spondyloarthritis [Recovered/Resolved]

NARRATIVE: CASE EVENT DATE: 20180323
